FAERS Safety Report 16814928 (Version 1)
Quarter: 2019Q3

REPORT INFORMATION
  Report Type: Spontaneous
  Country: US (occurrence: US)
  Receive Date: 20190917
  Receipt Date: 20190917
  Transmission Date: 20191005
  Serious: No
  Sender: FDA-Public Use
  Company Number: US-ALLERGAN-1924177US

PATIENT
  Sex: Female

DRUGS (5)
  1. DULCOLAX NOS [Concomitant]
     Active Substance: BISACODYL OR DOCUSATE SODIUM
     Dosage: 4 DF, QPM
  2. LINZESS [Suspect]
     Active Substance: LINACLOTIDE
     Indication: PRODUCT USED FOR UNKNOWN INDICATION
     Dosage: 290 ?G
     Route: 065
  3. LINZESS [Suspect]
     Active Substance: LINACLOTIDE
     Dosage: 145 ?G, QD
     Route: 065
  4. SENOKOT [Concomitant]
     Active Substance: SENNOSIDES
     Dosage: ACTUAL: 4 PILLS IN THE MORNING AND 4 IN THE EVENING
  5. METAMUCIL [Concomitant]
     Active Substance: PLANTAGO SEED
     Dosage: ACTUAL: 2 HEAPING TABLESPOONS

REACTIONS (5)
  - Constipation [Unknown]
  - Drug ineffective [Unknown]
  - Abdominal distension [Unknown]
  - Abdominal pain [Unknown]
  - Abnormal faeces [Unknown]

NARRATIVE: CASE EVENT DATE: 2017
